FAERS Safety Report 8337218-1 (Version None)
Quarter: 2012Q2

REPORT INFORMATION
  Report Type: 
  Country: None (occurrence: None)
  Receive Date: 20120502
  Receipt Date: 20120423
  Transmission Date: 20120825
  Serious: Yes (Disabling)
  Sender: FDA-Public Use
  Company Number: 2012SP017473

PATIENT
  Age: 27 Year
  Sex: Female
  Weight: 56.6996 kg

DRUGS (1)
  1. IMPLANON [Suspect]
     Indication: CONTRACEPTION
     Dates: start: 20110512, end: 20111115

REACTIONS (3)
  - IMPLANT SITE PAIN [None]
  - IMPLANT SITE PARAESTHESIA [None]
  - MUSCULAR WEAKNESS [None]
